FAERS Safety Report 5197737-6 (Version None)
Quarter: 2006Q4

REPORT INFORMATION
  Report Type: 
  Country: None (occurrence: None)
  Receive Date: 20061227
  Receipt Date: 20061212
  Transmission Date: 20070319
  Serious: Yes (Other)
  Sender: FDA-Public Use
  Company Number: 2006152136

PATIENT
  Age: 18 Month
  Sex: Male

DRUGS (1)
  1. DOXORUBICIN HCL [Suspect]
     Dosage: (50 MG), ORAL
     Route: 048

REACTIONS (1)
  - ACCIDENTAL DRUG INTAKE BY CHILD [None]
